FAERS Safety Report 5294334-9 (Version None)
Quarter: 2007Q2

REPORT INFORMATION
  Report Type: 
  Country: None (occurrence: None)
  Receive Date: 20070412
  Receipt Date: 20070403
  Transmission Date: 20071010
  Serious: Yes (Other)
  Sender: FDA-Public Use
  Company Number: GB-JNJFOC-20070401238

PATIENT
  Age: 79 Year
  Sex: Female

DRUGS (1)
  1. RISPERDAL [Suspect]
     Indication: AGITATION
     Route: 065

REACTIONS (2)
  - MENTAL DISORDER [None]
  - MENTAL IMPAIRMENT [None]
